FAERS Safety Report 24580995 (Version 2)
Quarter: 2024Q4

REPORT INFORMATION
  Report Type: Spontaneous
  Country: US (occurrence: US)
  Receive Date: 20241105
  Receipt Date: 20241211
  Transmission Date: 20250115
  Serious: Yes (Disabling)
  Sender: PFIZER
  Company Number: US-PFIZER INC-202400291095

PATIENT
  Age: 42 Year
  Sex: Female
  Weight: 51.5 kg

DRUGS (2)
  1. TIVDAK [Suspect]
     Active Substance: TISOTUMAB VEDOTIN-TFTV
     Indication: Squamous cell carcinoma of the cervix
     Dosage: Q (EVERY) 3 WEEK
     Route: 042
     Dates: start: 20240909, end: 20241030
  2. ALBUTEROL [Concomitant]
     Active Substance: ALBUTEROL
     Indication: Wheezing
     Dosage: 90 MCG, 2 PUFFS EVERY 4 HOURS AS NEEDED

REACTIONS (1)
  - Eye disorder [Not Recovered/Not Resolved]

NARRATIVE: CASE EVENT DATE: 20241005
